FAERS Safety Report 24905871 (Version 1)
Quarter: 2025Q1

REPORT INFORMATION
  Report Type: Report from Study
  Country: US (occurrence: US)
  Receive Date: 20250130
  Receipt Date: 20250130
  Transmission Date: 20250409
  Serious: Yes (Hospitalization, Other)
  Sender: ABBVIE
  Company Number: US-ABBVIE-6088377

PATIENT
  Age: 77 Year
  Sex: Male
  Weight: 8 kg

DRUGS (10)
  1. HUMIRA [Suspect]
     Active Substance: ADALIMUMAB
     Indication: Psoriatic arthropathy
     Dosage: CITRATE FREE PEN?FORM STRENGTH: 40 MILLIGRAM
     Route: 058
     Dates: start: 202409
  2. HUMIRA [Suspect]
     Active Substance: ADALIMUMAB
     Dosage: FORM STRENGTH: 40 MILLIGRAM
     Route: 058
     Dates: start: 202312, end: 202408
  3. MEDROL [Concomitant]
     Active Substance: METHYLPREDNISOLONE
     Indication: Condition aggravated
  4. TRAMADOL [Concomitant]
     Active Substance: TRAMADOL
     Indication: Pain
  5. ACETAMINOPHEN [Concomitant]
     Active Substance: ACETAMINOPHEN
     Indication: Product used for unknown indication
  6. FUROSEMIDE [Concomitant]
     Active Substance: FUROSEMIDE
     Indication: Oedema
  7. METOPROLOL [Concomitant]
     Active Substance: METOPROLOL
     Indication: Blood pressure measurement
  8. ALLOPURINOL [Concomitant]
     Active Substance: ALLOPURINOL
     Indication: Blood uric acid
  9. POTASSIUM [Concomitant]
     Active Substance: POTASSIUM
     Indication: Mineral supplementation
  10. OMEPRAZOLE [Concomitant]
     Active Substance: OMEPRAZOLE
     Indication: Hyperchlorhydria

REACTIONS (3)
  - Cyst [Recovered/Resolved]
  - Sepsis [Recovered/Resolved]
  - Peripheral swelling [Recovered/Resolved]

NARRATIVE: CASE EVENT DATE: 20240801
